FAERS Safety Report 15591652 (Version 2)
Quarter: 2018Q4

REPORT INFORMATION
  Report Type: Spontaneous
  Country: US (occurrence: US)
  Receive Date: 20181107
  Receipt Date: 20181121
  Transmission Date: 20190205
  Serious: Yes (Other)
  Sender: FDA-Public Use
  Company Number: US-PFIZER INC-2018453078

PATIENT
  Sex: Male
  Weight: 1.95 kg

DRUGS (4)
  1. MIFEPRISTONE [Concomitant]
     Active Substance: MIFEPRISTONE
     Indication: ABORTION INDUCED
     Dosage: 200 MG, UNK
     Route: 064
  2. MISOPROSTOL. [Suspect]
     Active Substance: MISOPROSTOL
     Dosage: 800 UG, UNK
     Route: 064
  3. MISOPROSTOL. [Suspect]
     Active Substance: MISOPROSTOL
     Indication: ABORTION INDUCED
     Dosage: 200 MG, UNK
     Route: 064
  4. MISOPROSTOL. [Suspect]
     Active Substance: MISOPROSTOL
     Dosage: 800 UG, UNK
     Route: 064

REACTIONS (6)
  - Product use in unapproved indication [Unknown]
  - Premature baby [Unknown]
  - Apgar score low [Unknown]
  - Maternal exposure during pregnancy [Unknown]
  - Fallot^s tetralogy [Unknown]
  - Multiple congenital abnormalities [Unknown]
